FAERS Safety Report 5171047-5 (Version None)
Quarter: 2006Q4

REPORT INFORMATION
  Report Type: 
  Country: None (occurrence: None)
  Receive Date: 20061213
  Receipt Date: 20061024
  Transmission Date: 20070319
  Serious: Yes (Hospitalization)
  Sender: FDA-Public Use
  Company Number: US-GLAXOSMITHKLINE-A0624739A

PATIENT
  Age: 67 Year
  Sex: Female

DRUGS (4)
  1. COREG [Suspect]
     Indication: HYPERTENSION
     Dosage: 12.5MG PER DAY
     Route: 048
     Dates: start: 20040401
  2. ALTACE [Suspect]
     Indication: DRUG USE FOR UNKNOWN INDICATION
     Route: 048
  3. SYNTHROID [Concomitant]
  4. HORMONES [Concomitant]

REACTIONS (4)
  - AMNESIA [None]
  - INFLUENZA LIKE ILLNESS [None]
  - MYALGIA [None]
  - TRANSIENT ISCHAEMIC ATTACK [None]
